FAERS Safety Report 24432162 (Version 2)
Quarter: 2024Q4

REPORT INFORMATION
  Report Type: Report from Study
  Country: US (occurrence: US)
  Receive Date: 20241014
  Receipt Date: 20241023
  Transmission Date: 20250115
  Serious: No
  Sender: ROCHE
  Company Number: US-ROCHE-3474713

PATIENT
  Age: 68 Year
  Sex: Male
  Weight: 99.79 kg

DRUGS (2)
  1. OCREVUS [Suspect]
     Active Substance: OCRELIZUMAB
     Indication: Relapsing multiple sclerosis
     Dosage: THE SUBSEQUENTLY 600 MG EVERY 6 MONTHS
     Route: 042
     Dates: start: 20170717
  2. BACLOFEN [Concomitant]
     Active Substance: BACLOFEN
     Indication: Muscle spasticity
     Route: 048

REACTIONS (4)
  - Muscular weakness [Not Recovered/Not Resolved]
  - Diarrhoea [Unknown]
  - COVID-19 [Recovered/Resolved]
  - Sluggishness [Not Recovered/Not Resolved]

NARRATIVE: CASE EVENT DATE: 20180101
